FAERS Safety Report 13964327 (Version 1)
Quarter: 2017Q3

REPORT INFORMATION
  Report Type: Spontaneous
  Country: US (occurrence: US)
  Receive Date: 20170913
  Receipt Date: 20170913
  Transmission Date: 20171128
  Serious: Yes (Hospitalization)
  Sender: FDA-Public Use
  Company Number: None

PATIENT
  Age: 77 Year
  Sex: Male
  Weight: 117.04 kg

DRUGS (20)
  1. FUROSEMIDE. [Concomitant]
     Active Substance: FUROSEMIDE
  2. INSULIN LISPRO (HUMALOG SC) [Concomitant]
  3. PEMBROLIZUMAB. [Suspect]
     Active Substance: PEMBROLIZUMAB
     Indication: LUNG NEOPLASM MALIGNANT
     Dosage: ?          OTHER FREQUENCY:Q 3 WEEKS;?
     Route: 042
     Dates: start: 20170517, end: 20170829
  4. CHLORDIAZEPOXIDE-CLIDINIUM [Concomitant]
     Active Substance: CHLORDIAZEPOXIDE\CLIDINIUM
  5. ASPIRIN EC [Concomitant]
     Active Substance: ASPIRIN
  6. CYCLOBENZAPRINE HCL [Concomitant]
     Active Substance: CYCLOBENZAPRINE HYDROCHLORIDE
  7. PREDNISONE. [Concomitant]
     Active Substance: PREDNISONE
  8. XARELTO [Concomitant]
     Active Substance: RIVAROXABAN
  9. METOPROLOL TARTRATE. [Concomitant]
     Active Substance: METOPROLOL TARTRATE
  10. DULOXETINE HCL [Concomitant]
     Active Substance: DULOXETINE HYDROCHLORIDE
  11. LISINOPRIL. [Concomitant]
     Active Substance: LISINOPRIL
  12. OMEGA-3 FATTY ACIDS (FISH OIL) [Concomitant]
  13. OXYCODONE [Concomitant]
     Active Substance: OXYCODONE
  14. ALLOPURINOL. [Concomitant]
     Active Substance: ALLOPURINOL
  15. INSULIN GLARGINE (LANTUS SC) [Concomitant]
  16. TAMSULOSIN [Concomitant]
     Active Substance: TAMSULOSIN
  17. ALPRAZOLAM. [Concomitant]
     Active Substance: ALPRAZOLAM
  18. DIPHENHYDRAMINE. [Concomitant]
     Active Substance: DIPHENHYDRAMINE
  19. DOCUSATE SODIUM. [Concomitant]
     Active Substance: DOCUSATE SODIUM
  20. OXYCODONE-ACETAMINOPHEN [Concomitant]
     Active Substance: ACETAMINOPHEN\OXYCODONE HYDROCHLORIDE

REACTIONS (5)
  - Rectal haemorrhage [None]
  - Constipation [None]
  - Haematuria [None]
  - Pulmonary embolism [None]
  - Prostatomegaly [None]

NARRATIVE: CASE EVENT DATE: 20170908
